FAERS Safety Report 7368821-3 (Version None)
Quarter: 2011Q1

REPORT INFORMATION
  Report Type: 
  Country: None (occurrence: None)
  Receive Date: 20110323
  Receipt Date: 20100914
  Transmission Date: 20110831
  Serious: Yes (Hospitalization, Other)
  Sender: FDA-Public Use
  Company Number: US-BAYER-201021493NA

PATIENT
  Sex: Female
  Weight: 117.91 kg

DRUGS (10)
  1. NASONEX [Concomitant]
  2. ASTELIN [Concomitant]
  3. YAZ [Suspect]
     Dosage: UNK
     Dates: start: 20071101, end: 20080501
  4. ACNE MEDICATION-10 [Concomitant]
  5. YASMIN [Suspect]
     Indication: PRODUCT USED FOR UNKNOWN INDICATION
     Dosage: AS USED DOSE: UNK
     Route: 048
  6. CHONDROITIN [Concomitant]
  7. LEXAPRO [Concomitant]
  8. YAZ [Suspect]
     Indication: ENDOMETRIOSIS
     Dosage: AS USED DOSE: UNK
     Route: 048
     Dates: start: 20071101, end: 20080501
  9. GLUCOSAMINE [Concomitant]
  10. IBUPROFEN [Concomitant]

REACTIONS (1)
  - DEEP VEIN THROMBOSIS [None]
